FAERS Safety Report 11798831 (Version 1)
Quarter: 2015Q4

REPORT INFORMATION
  Report Type: Report from Study
  Country: US (occurrence: US)
  Receive Date: 20151203
  Receipt Date: 20151203
  Transmission Date: 20160305
  Serious: No
  Sender: FDA-Public Use
  Company Number: US-AMGEN-USASP2015106001

PATIENT
  Age: 78 Year
  Sex: Male
  Weight: 80.73 kg

DRUGS (11)
  1. ALBUTEROL SULFATE. [Concomitant]
     Active Substance: ALBUTEROL SULFATE
     Dosage: 2.5MG/3ML
     Dates: start: 20150302
  2. DUREZOL [Concomitant]
     Active Substance: DIFLUPREDNATE
     Dosage: 1 DROP IN LEFT EYE 3 TIMES A DAY
     Route: 047
     Dates: start: 20150805
  3. FIBER [Concomitant]
     Active Substance: PSYLLIUM HUSK
     Dosage: 1 DF, QD
  4. MULTIVITAMIN                       /00097801/ [Concomitant]
     Active Substance: VITAMINS
     Dosage: UNK
  5. REPATHA [Suspect]
     Active Substance: EVOLOCUMAB
     Indication: HYPERCHOLESTEROLAEMIA
     Dosage: 140 MG, Q2WK
     Route: 058
     Dates: start: 20151008
  6. FLAXSEED [Concomitant]
     Active Substance: FLAX SEED
     Dosage: 1000 MG, QD
     Route: 048
  7. COZAAR [Concomitant]
     Active Substance: LOSARTAN POTASSIUM
     Dosage: 25 MG, QD
     Route: 048
     Dates: start: 20101028
  8. PRILOSEC [Concomitant]
     Active Substance: OMEPRAZOLE MAGNESIUM
     Dosage: 20 MG, QD
     Route: 048
     Dates: start: 20080703
  9. AMOXICILLIN. [Concomitant]
     Active Substance: AMOXICILLIN
     Dosage: 500 MG, TAKE 4 ONE HOUR BEFBRE PROCEDURE
     Route: 048
     Dates: start: 20150317
  10. ASPIRIN                            /00002701/ [Concomitant]
     Active Substance: ASPIRIN
     Dosage: 81 MG, QD
     Route: 048
  11. VITAMIN B12 [Concomitant]
     Active Substance: CYANOCOBALAMIN
     Dosage: UNK

REACTIONS (9)
  - Lethargy [Unknown]
  - Tinnitus [Unknown]
  - Injection site pain [Unknown]
  - Burning sensation [Recovered/Resolved]
  - Headache [Recovered/Resolved]
  - Dizziness [Recovered/Resolved]
  - Influenza like illness [Recovered/Resolved]
  - Pyrexia [Recovered/Resolved]
  - Irritability [Recovered/Resolved]

NARRATIVE: CASE EVENT DATE: 201510
